FAERS Safety Report 12937985 (Version 3)
Quarter: 2017Q4

REPORT INFORMATION
  Report Type: Spontaneous
  Country: JP (occurrence: JP)
  Receive Date: 20161114
  Receipt Date: 20171109
  Transmission Date: 20180320
  Serious: Yes (Other)
  Sender: FDA-Public Use
  Company Number: PHJP2016JP032436

PATIENT
  Age: 30 Year
  Sex: Female

DRUGS (1)
  1. GILENYA [Suspect]
     Active Substance: FINGOLIMOD HYDROCHLORIDE
     Indication: MULTIPLE SCLEROSIS
     Dosage: UNK
     Route: 048

REACTIONS (8)
  - Rebound effect [Unknown]
  - Pyrexia [Unknown]
  - Herpes zoster [Unknown]
  - Ear pruritus [Unknown]
  - Hepatic function abnormal [Unknown]
  - Central nervous system lesion [Recovering/Resolving]
  - Oropharyngeal pain [Unknown]
  - Pain [Unknown]
